FAERS Safety Report 7422175 (Version 3)
Quarter: 2015Q2

REPORT INFORMATION
  Report Type: Spontaneous
  Country: BR (occurrence: BR)
  Receive Date: 20100616
  Receipt Date: 20150413
  Transmission Date: 20150821
  Serious: Yes (Death, Disabling, Other)
  Sender: FDA-Public Use
  Company Number: BR-PFIZER INC-2010072848

PATIENT
  Age: 77 Year
  Sex: Female
  Weight: 65 kg

DRUGS (3)
  1. TAMOXIFEN CITRATE. [Suspect]
     Active Substance: TAMOXIFEN CITRATE
     Indication: BREAST CANCER
     Dosage: UNK
     Dates: start: 20100610
  2. GENOTROPIN [Suspect]
     Active Substance: SOMATROPIN
     Indication: ATROPHY
     Dosage: 0.5 MG, 7 TIMES WEEKLY
     Route: 058
     Dates: start: 2006
  3. GENOTROPIN [Suspect]
     Active Substance: SOMATROPIN
     Dosage: UNK
     Dates: start: 201110

REACTIONS (10)
  - Ligament sprain [Not Recovered/Not Resolved]
  - Stress [Unknown]
  - Immunodeficiency [Unknown]
  - Death [Fatal]
  - Road traffic accident [Unknown]
  - Fall [Not Recovered/Not Resolved]
  - Breast cancer [Unknown]
  - Fatigue [Unknown]
  - Pelvic fracture [Not Recovered/Not Resolved]
  - Pain [Unknown]

NARRATIVE: CASE EVENT DATE: 2007
